FAERS Safety Report 10185742 (Version 1)
Quarter: 2014Q2

REPORT INFORMATION
  Report Type: Spontaneous
  Country: FR (occurrence: FR)
  Receive Date: 20140521
  Receipt Date: 20140521
  Transmission Date: 20141212
  Serious: Yes (Hospitalization)
  Sender: FDA-Public Use
  Company Number: PHHY2014FR060275

PATIENT
  Age: 35 Year
  Sex: Female

DRUGS (3)
  1. GILENYA [Suspect]
     Dosage: 0.5 MG, QD
     Route: 048
     Dates: start: 20120430, end: 20140303
  2. LAROXYL [Suspect]
     Dosage: UNK UKN, QD
     Route: 048
     Dates: start: 20120418, end: 20140303
  3. SYMBICORT [Concomitant]
     Dosage: 200/6 MCG/ DOSE, QD
     Route: 055

REACTIONS (2)
  - Hepatitis [Recovered/Resolved]
  - Headache [Recovered/Resolved]
